FAERS Safety Report 21605862 (Version 1)
Quarter: 2022Q4

REPORT INFORMATION
  Report Type: Spontaneous
  Country: US (occurrence: None)
  Receive Date: 20221116
  Receipt Date: 20221116
  Transmission Date: 20230113
  Serious: Yes (Hospitalization)
  Sender: FDA-Public Use
  Company Number: None

PATIENT
  Sex: Male

DRUGS (18)
  1. TACROLIMUS [Suspect]
     Active Substance: TACROLIMUS
     Indication: Renal transplant
     Dosage: FREQUENCY : EVERY 12 HOURS;?
     Route: 048
     Dates: start: 20170728
  2. TACROLIMUS [Suspect]
     Active Substance: TACROLIMUS
     Dosage: FREQUENCY : EVERY 12 HOURS;?
     Route: 048
  3. ACID REDUCER [Concomitant]
     Active Substance: ESOMEPRAZOLE MAGNESIUM
  4. ATORVASTATIN [Concomitant]
     Active Substance: ATORVASTATIN
  5. BABY ASPIRIN CHW [Concomitant]
  6. CULTURELLE [Concomitant]
     Active Substance: LACTOBACILLUS RHAMNOSUS
  7. FLOMAX [Concomitant]
     Active Substance: TAMSULOSIN HYDROCHLORIDE
  8. GABAPENTIN [Concomitant]
     Active Substance: GABAPENTIN
  9. LIPITOR [Concomitant]
     Active Substance: ATORVASTATIN CALCIUM
  10. LOPERAMIDE [Concomitant]
     Active Substance: LOPERAMIDE
  11. MAGNESIUM [Concomitant]
     Active Substance: MAGNESIUM
  12. MULTIVITAMIN [Concomitant]
  13. NADOLOL [Concomitant]
     Active Substance: NADOLOL
  14. PREDNISONE [Concomitant]
     Active Substance: PREDNISONE
  15. RANITIDINE [Concomitant]
     Active Substance: RANITIDINE
  16. SPIRIVA [Concomitant]
     Active Substance: TIOTROPIUM BROMIDE MONOHYDRATE
  17. ST JOSEPH AS CHW [Concomitant]
  18. VITAMIN D [Concomitant]
     Active Substance: VITAMIN D NOS

REACTIONS (1)
  - Hospitalisation [None]
